FAERS Safety Report 5899310-0 (Version None)
Quarter: 2008Q3

REPORT INFORMATION
  Report Type: 
  Country: None (occurrence: None)
  Receive Date: 20080909
  Receipt Date: 20071001
  Transmission Date: 20090109
  Serious: Yes (Other)
  Sender: FDA-Public Use
  Company Number: US-WYE-H00484807

PATIENT
  Age: 42 Year
  Sex: Female
  Weight: 98.52 kg

DRUGS (3)
  1. ADVIL [Suspect]
     Indication: HEADACHE
     Dosage: 2 CAPSULES AS NEEDED, ORAL
     Route: 048
     Dates: start: 20070929, end: 20070929
  2. MULTIVITAMINS (ASCORBIC ACID/ERGOCALCIFEROL/FOLIC ACID/NICOTINAMIDE/PA [Concomitant]
  3. METFORMIN HCL [Concomitant]

REACTIONS (5)
  - HYPERSENSITIVITY [None]
  - LIP SWELLING [None]
  - SWELLING FACE [None]
  - SWOLLEN TONGUE [None]
  - URTICARIA [None]
